FAERS Safety Report 12223932 (Version 5)
Quarter: 2017Q1

REPORT INFORMATION
  Report Type: Report from Study
  Country: None (occurrence: PR)
  Receive Date: 20160330
  Receipt Date: 20170202
  Transmission Date: 20170428
  Serious: Yes (Other)
  Sender: FDA-Public Use
  Company Number: PR-ABBVIE-16K-131-1592442-00

PATIENT
  Sex: Male
  Weight: 78.09 kg

DRUGS (15)
  1. LOSARTAN. [Concomitant]
     Active Substance: LOSARTAN
     Indication: HYPERTENSION
     Route: 048
     Dates: start: 2014
  2. ULORIC [Concomitant]
     Active Substance: FEBUXOSTAT
     Indication: RENAL DISORDER
     Route: 048
     Dates: start: 2015
  3. WARFARIN [Concomitant]
     Active Substance: WARFARIN
     Indication: COAGULOPATHY
  4. COZAAR [Concomitant]
     Active Substance: LOSARTAN POTASSIUM
     Indication: HYPERTENSION
     Route: 048
  5. HUMIRA [Suspect]
     Active Substance: ADALIMUMAB
     Indication: PSORIATIC ARTHROPATHY
     Route: 058
     Dates: start: 200704
  6. PANTOPRAZOLE [Concomitant]
     Active Substance: PANTOPRAZOLE SODIUM
     Indication: DYSPEPSIA
     Route: 048
     Dates: start: 20160309
  7. ULORIC [Concomitant]
     Active Substance: FEBUXOSTAT
     Indication: PROPHYLAXIS
  8. SIMVASTATIN. [Concomitant]
     Active Substance: SIMVASTATIN
     Indication: BLOOD CHOLESTEROL INCREASED
     Route: 048
  9. PROBIOTICS [Concomitant]
     Active Substance: PROBIOTICS NOS
     Indication: DYSPEPSIA
     Route: 048
     Dates: start: 20160309
  10. HUMIRA [Suspect]
     Active Substance: ADALIMUMAB
     Indication: RHEUMATOID ARTHRITIS
     Route: 058
  11. WARFARIN [Concomitant]
     Active Substance: WARFARIN
     Indication: CARDIAC DISORDER
     Dosage: 3 ML DAILY, 4 ML ON FRIDAYS
     Route: 048
     Dates: start: 201508
  12. OMEGA 3 [Concomitant]
     Active Substance: OMEGA-3 FATTY ACIDS
     Indication: PRODUCT USED FOR UNKNOWN INDICATION
     Route: 048
  13. ULORIC [Concomitant]
     Active Substance: FEBUXOSTAT
     Indication: NEPHROLITHIASIS
  14. WARFARIN [Concomitant]
     Active Substance: WARFARIN
     Indication: INTERNATIONAL NORMALISED RATIO ABNORMAL
  15. HUMIRA [Suspect]
     Active Substance: ADALIMUMAB
     Route: 058

REACTIONS (18)
  - Fatigue [Recovered/Resolved]
  - Gastrooesophageal reflux disease [Unknown]
  - Kidney infection [Unknown]
  - Hypertension [Recovered/Resolved]
  - Heart rate decreased [Recovered/Resolved]
  - Atrial fibrillation [Recovered/Resolved]
  - Blood cholesterol increased [Recovered/Resolved]
  - Deafness [Not Recovered/Not Resolved]
  - Capillary disorder [Recovering/Resolving]
  - Urinary tract infection bacterial [Recovered/Resolved]
  - Rash generalised [Unknown]
  - Glaucoma [Recovering/Resolving]
  - Blood triglycerides increased [Recovered/Resolved]
  - International normalised ratio abnormal [Recovered/Resolved]
  - Laboratory test abnormal [Unknown]
  - Peripheral swelling [Recovering/Resolving]
  - Eye pain [Recovered/Resolved]
  - Erythema [Recovering/Resolving]

NARRATIVE: CASE EVENT DATE: 2009
